FAERS Safety Report 6263767-6 (Version None)
Quarter: 2009Q3

REPORT INFORMATION
  Report Type: 
  Country: None (occurrence: None)
  Receive Date: 20090710
  Receipt Date: 20090701
  Transmission Date: 20100115
  Serious: Yes (Hospitalization)
  Sender: FDA-Public Use
  Company Number: PHHY2009MX25827

PATIENT
  Sex: Female

DRUGS (2)
  1. DIOVAN [Suspect]
     Indication: HYPERTENSION
     Dosage: 2 TABLETS (160 MG) PER DAY
     Route: 048
     Dates: start: 20071101
  2. DIOVAN [Suspect]
     Dosage: 1 TABLET (160 MG) PER DAY
     Route: 048

REACTIONS (1)
  - PERITONITIS [None]
